FAERS Safety Report 6601555-9 (Version None)
Quarter: 2010Q1

REPORT INFORMATION
  Report Type: 
  Country: None (occurrence: None)
  Receive Date: 20100225
  Receipt Date: 20091116
  Transmission Date: 20100710
  Serious: No
  Sender: FDA-Public Use
  Company Number: US-KINGPHARMUSA00001-K200901443

PATIENT
  Age: 83 Year
  Sex: Male
  Weight: 90.703 kg

DRUGS (15)
  1. FLECTOR [Suspect]
     Indication: MUSCULOSKELETAL PAIN
     Dosage: 2 PATCH, QHS
     Route: 061
     Dates: start: 20091021
  2. PERCOCET [Concomitant]
     Indication: MUSCULOSKELETAL PAIN
     Dosage: UNK
  3. MELOXICAM [Concomitant]
     Indication: ARTHRITIS
     Dosage: UNK
  4. TRICOR [Concomitant]
     Indication: BLOOD CHOLESTEROL INCREASED
     Dosage: UNK
  5. GLYBURIDE [Concomitant]
     Indication: TYPE 2 DIABETES MELLITUS
     Dosage: UNK
  6. NEXIUM [Concomitant]
     Indication: GASTROOESOPHAGEAL REFLUX DISEASE
     Dosage: UNK
  7. ATENOLOL [Concomitant]
     Indication: HEART RATE IRREGULAR
     Dosage: UNK
  8. FERROUS GLUCONATE [Concomitant]
     Dosage: UNK
  9. NEURONTIN [Concomitant]
     Dosage: UNK
  10. VITAMINS [Concomitant]
     Dosage: UNK
  11. STOOL SOFTENER [Concomitant]
     Dosage: UNK
  12. GLUCOSAMINE /CHOND [Concomitant]
     Dosage: UNK
  13. BABY ASPIRIN [Concomitant]
     Dosage: UNK
  14. ZYRTEC [Concomitant]
     Indication: SEASONAL ALLERGY
     Dosage: UNK
  15. CALCIUM [Concomitant]
     Dosage: UNK

REACTIONS (2)
  - DRUG INEFFECTIVE [None]
  - PAIN [None]
